FAERS Safety Report 4860461-0 (Version None)
Quarter: 2005Q4

REPORT INFORMATION
  Report Type: 
  Country: None (occurrence: None)
  Receive Date: 20051219
  Receipt Date: 20051116
  Transmission Date: 20060501
  Serious: Yes (Hospitalization, Other)
  Sender: FDA-Public Use
  Company Number: PHBS2005JP16818

PATIENT
  Age: 30 Year
  Sex: Male

DRUGS (17)
  1. GLEEVEC [Suspect]
     Indication: ACUTE LYMPHOCYTIC LEUKAEMIA RECURRENT
     Dosage: 400 MG/D
     Route: 048
     Dates: start: 20030101, end: 20030801
  2. GLEEVEC [Suspect]
     Dosage: 600 MG/D
     Route: 048
     Dates: start: 20030801, end: 20040401
  3. GLEEVEC [Suspect]
     Dosage: 200 MG/D
     Route: 048
     Dates: start: 20051111, end: 20051116
  4. URSO [Concomitant]
     Dosage: 300 MG/D
     Route: 048
  5. ENTOMOL [Concomitant]
     Dosage: 3 G/D
     Route: 048
  6. TAKEPRON [Concomitant]
     Dosage: 30 MG/D
     Route: 048
  7. VALTREX [Concomitant]
     Dosage: 1000 MG/D
     Route: 048
  8. PYRINAZIN [Concomitant]
     Dosage: 2 G/D
     Route: 048
  9. PREDONINE [Concomitant]
     Dosage: 25 MG/D
     Route: 048
  10. BONALON [Concomitant]
     Dosage: 5 MG/D
     Route: 048
  11. OXYCONTIN [Concomitant]
     Dosage: 50 MG/D
     Route: 048
  12. METHYLPREDNISOLONE SODIUM SUCCINATE [Concomitant]
     Dosage: 80 MG/D
     Dates: start: 20030801
  13. METHYLPREDNISOLONE SODIUM SUCCINATE [Concomitant]
     Dosage: 80 MG/D
     Dates: start: 20040401
  14. VINCRISTINE SULFATE [Concomitant]
     Dates: start: 20030801
  15. VINCRISTINE SULFATE [Concomitant]
     Dates: start: 20040401
  16. VP-16 [Concomitant]
     Dates: start: 20040401
  17. CYTARABINE [Concomitant]
     Dosage: 1 G/M2/D
     Dates: start: 20040401

REACTIONS (20)
  - BLAST CELL COUNT INCREASED [None]
  - DEAFNESS [None]
  - DIPLEGIA [None]
  - DISORDER OF ORBIT [None]
  - DYSPNOEA [None]
  - EXOPHTHALMOS [None]
  - EYE DISORDER [None]
  - EYE PAIN [None]
  - FIBROSIS [None]
  - INTRAOCULAR PRESSURE INCREASED [None]
  - LEUKOENCEPHALOPATHY [None]
  - MASS [None]
  - NERVOUS SYSTEM DISORDER [None]
  - PAIN [None]
  - PERIORBITAL OEDEMA [None]
  - PLEURAL EFFUSION [None]
  - RADIOTHERAPY [None]
  - SHOULDER PAIN [None]
  - SINUS DISORDER [None]
  - URINARY RETENTION [None]
